FAERS Safety Report 5870230-0 (Version None)
Quarter: 2008Q3

REPORT INFORMATION
  Report Type: 
  Country: None (occurrence: None)
  Receive Date: 20080904
  Receipt Date: 20080827
  Transmission Date: 20090109
  Serious: Yes (Hospitalization)
  Sender: FDA-Public Use
  Company Number: NL-BRISTOL-MYERS SQUIBB COMPANY-13811716

PATIENT
  Age: 76 Year
  Sex: Female

DRUGS (4)
  1. IRBESARTAN [Suspect]
     Indication: CARDIAC FAILURE
     Dosage: 27-NOV-02 TO 09-DEC-02 75/MG THEN 10-DEC-02 TO 23-DEC-02 150/MG.
     Route: 048
     Dates: start: 20021224, end: 20070516
  2. TOLBUTAMIDE [Concomitant]
     Dates: start: 20070327
  3. MONO-CEDOCARD [Concomitant]
     Dates: start: 20000119
  4. ASCAL [Concomitant]
     Dates: start: 20000119, end: 20070530

REACTIONS (2)
  - DEHYDRATION [None]
  - RENAL FAILURE [None]
